FAERS Safety Report 7467057-5 (Version None)
Quarter: 2011Q2

REPORT INFORMATION
  Report Type: 
  Country: None (occurrence: None)
  Receive Date: 20110509
  Receipt Date: 20110429
  Transmission Date: 20111010
  Serious: Yes (Other)
  Sender: FDA-Public Use
  Company Number: US-ASTRAZENECA-2011SE24877

PATIENT
  Sex: Male

DRUGS (2)
  1. LAMICTAL [Concomitant]
  2. SEROQUEL [Suspect]
     Route: 048

REACTIONS (1)
  - TRANSIENT ISCHAEMIC ATTACK [None]
